FAERS Safety Report 8809868 (Version 28)
Quarter: 2025Q1

REPORT INFORMATION
  Report Type: Report from Study
  Country: CA (occurrence: CA)
  Receive Date: 20120926
  Receipt Date: 20250317
  Transmission Date: 20250409
  Serious: Yes (Other)
  Sender: ROCHE
  Company Number: CA-ROCHE-1131737

PATIENT
  Age: 70 Year
  Sex: Female
  Weight: 115.0 kg

DRUGS (25)
  1. ACTEMRA [Suspect]
     Active Substance: TOCILIZUMAB
     Indication: Rheumatoid arthritis
     Route: 042
     Dates: start: 20101111
  2. ACTEMRA [Suspect]
     Active Substance: TOCILIZUMAB
     Route: 042
     Dates: start: 20111020
  3. ACTEMRA [Suspect]
     Active Substance: TOCILIZUMAB
     Route: 042
     Dates: start: 2008
  4. ACTEMRA [Suspect]
     Active Substance: TOCILIZUMAB
     Route: 042
     Dates: start: 20130919
  5. ACTEMRA [Suspect]
     Active Substance: TOCILIZUMAB
     Route: 042
     Dates: start: 20150108
  6. ACTEMRA [Suspect]
     Active Substance: TOCILIZUMAB
     Route: 042
  7. ACTEMRA [Suspect]
     Active Substance: TOCILIZUMAB
     Route: 042
  8. ACTEMRA [Suspect]
     Active Substance: TOCILIZUMAB
     Route: 042
  9. ACTEMRA [Suspect]
     Active Substance: TOCILIZUMAB
     Route: 042
  10. ACTEMRA [Suspect]
     Active Substance: TOCILIZUMAB
     Route: 042
  11. ACTEMRA [Suspect]
     Active Substance: TOCILIZUMAB
     Route: 042
  12. ACTEMRA [Suspect]
     Active Substance: TOCILIZUMAB
     Route: 042
  13. ACTEMRA [Suspect]
     Active Substance: TOCILIZUMAB
     Route: 042
  14. METHOTREXATE [Suspect]
     Active Substance: METHOTREXATE
     Indication: Rheumatoid arthritis
     Route: 058
  15. METHOTREXATE [Suspect]
     Active Substance: METHOTREXATE
     Route: 065
     Dates: end: 2017
  16. PREDNISONE [Concomitant]
     Active Substance: PREDNISONE
  17. FOLIC ACID [Concomitant]
     Active Substance: FOLIC ACID
     Dosage: FREQUENCY TEXT:1 CO DIE 6/7T
     Route: 048
  18. PANTOPRAZOLE SODIUM [Concomitant]
     Active Substance: PANTOPRAZOLE SODIUM
  19. CELEBREX [Concomitant]
     Active Substance: CELECOXIB
     Dosage: FREQUENCY TEXT:1 1/2CO DIE
     Route: 048
  20. NORVASC [Concomitant]
     Active Substance: AMLODIPINE BESYLATE
  21. PAXIL [Concomitant]
     Active Substance: PAROXETINE HYDROCHLORIDE
  22. IMOVANE [Concomitant]
     Active Substance: ZOPICLONE
  23. AVELOX [Concomitant]
     Active Substance: MOXIFLOXACIN HYDROCHLORIDE
  24. FLAGYL [Concomitant]
     Active Substance: METRONIDAZOLE\METRONIDAZOLE HYDROCHLORIDE
     Dates: start: 201902
  25. CIPRO [Concomitant]
     Active Substance: CIPROFLOXACIN HYDROCHLORIDE

REACTIONS (30)
  - Spinal compression fracture [Recovering/Resolving]
  - Vascular access site haemorrhage [Unknown]
  - Herpes zoster [Recovered/Resolved]
  - Weight decreased [Not Recovered/Not Resolved]
  - Weight increased [Unknown]
  - Fall [Unknown]
  - Nasopharyngitis [Unknown]
  - Oral herpes [Recovered/Resolved]
  - Bronchitis [Unknown]
  - Heart rate decreased [Unknown]
  - Chest discomfort [Unknown]
  - Pain in extremity [Unknown]
  - Arthralgia [Unknown]
  - Oxygen saturation decreased [Unknown]
  - Blood pressure increased [Unknown]
  - Secretion discharge [Unknown]
  - Insomnia [Unknown]
  - Dyspnoea [Unknown]
  - Limb discomfort [Recovered/Resolved]
  - Pulmonary mass [Unknown]
  - Lymphoma [Not Recovered/Not Resolved]
  - Joint swelling [Not Recovered/Not Resolved]
  - Skin laceration [Not Recovered/Not Resolved]
  - Toxicity to various agents [Unknown]
  - Pulmonary fibrosis [Not Recovered/Not Resolved]
  - Pseudolymphoma [Unknown]
  - Infusion related reaction [Unknown]
  - Influenza like illness [Unknown]
  - Gastrointestinal infection [Unknown]
  - Oxygen saturation decreased [Unknown]

NARRATIVE: CASE EVENT DATE: 20120831
